FAERS Safety Report 14118297 (Version 2)
Quarter: 2019Q3

REPORT INFORMATION
  Report Type: Spontaneous
  Country: US (occurrence: US)
  Receive Date: 20171023
  Receipt Date: 20190917
  Transmission Date: 20191004
  Serious: No
  Sender: FDA-Public Use
  Company Number: US-FRI-1000067770

PATIENT
  Age: 59 Year
  Sex: Male

DRUGS (10)
  1. BABY ASPIRIN [Concomitant]
     Active Substance: ASPIRIN
     Indication: PRODUCT USED FOR UNKNOWN INDICATION
     Dosage: 81 MG, QD
     Route: 048
  2. VASOTEC [Concomitant]
     Active Substance: ENALAPRIL MALEATE
     Indication: PRODUCT USED FOR UNKNOWN INDICATION
     Dosage: UNK
  3. LIPITOR [Concomitant]
     Active Substance: ATORVASTATIN CALCIUM
     Indication: BLOOD CHOLESTEROL INCREASED
     Dosage: UNK
  4. LINZESS [Suspect]
     Active Substance: LINACLOTIDE
     Indication: IRRITABLE BOWEL SYNDROME
     Dosage: 145 ?G, QD
     Route: 048
     Dates: start: 20140823, end: 20140825
  5. LINZESS [Suspect]
     Active Substance: LINACLOTIDE
     Dosage: 145 ?G, QD
     Route: 048
     Dates: start: 20140529, end: 20140531
  6. KLONOPIN [Concomitant]
     Active Substance: CLONAZEPAM
     Indication: PRODUCT USED FOR UNKNOWN INDICATION
     Dosage: UNK
  7. LINZESS [Suspect]
     Active Substance: LINACLOTIDE
     Indication: CONSTIPATION
     Dosage: ALTERNATING BETWEEN 145 MCG AND 72 MCG DAY TO DAY
     Route: 065
  8. PROTONIX [Concomitant]
     Active Substance: PANTOPRAZOLE SODIUM
     Indication: PRODUCT USED FOR UNKNOWN INDICATION
     Dosage: UNK
  9. TRAZODONE [Concomitant]
     Active Substance: TRAZODONE HYDROCHLORIDE
     Indication: PRODUCT USED FOR UNKNOWN INDICATION
     Dosage: UNK
  10. VITAMIN D [Concomitant]
     Active Substance: VITAMIN D NOS
     Indication: PRODUCT USED FOR UNKNOWN INDICATION
     Dosage: UNK

REACTIONS (5)
  - Inappropriate schedule of product administration [Unknown]
  - Diarrhoea [Unknown]
  - Abdominal pain upper [Unknown]
  - Off label use [Unknown]
  - Product dose omission [Unknown]

NARRATIVE: CASE EVENT DATE: 20140529
